FAERS Safety Report 9040867 (Version 1)
Quarter: 2013Q1

REPORT INFORMATION
  Report Type: Spontaneous
  Country: US (occurrence: None)
  Receive Date: 20130123
  Receipt Date: 20130123
  Transmission Date: 20140127
  Serious: Yes (Hospitalization)
  Sender: FDA-Public Use
  Company Number: None

PATIENT
  Age: 56 Year
  Sex: Male
  Weight: 76.5 kg

DRUGS (1)
  1. AMOXICILLIN/CLAVULANATE POTASSIUM [Suspect]
     Indication: SKIN INFECTION
     Dosage: 1 TAB  BID  PO
     Route: 048
     Dates: start: 20121201, end: 20121207

REACTIONS (4)
  - Liver injury [None]
  - Alcohol withdrawal syndrome [None]
  - Hepatotoxicity [None]
  - Hepatic steatosis [None]
